FAERS Safety Report 9067390 (Version 1)
Quarter: 2013Q1

REPORT INFORMATION
  Report Type: Other
  Country: DE (occurrence: DE)
  Receive Date: 20130206
  Receipt Date: 20130206
  Transmission Date: 20140127
  Serious: Yes (Other)
  Sender: FDA-Public Use
  Company Number: DE-BRISTOL-MYERS SQUIBB COMPANY-17350034

PATIENT
  Age: 72 Year
  Sex: Female

DRUGS (1)
  1. IPILIMUMAB [Suspect]
     Indication: METASTATIC MALIGNANT MELANOMA
     Dosage: INFUSION

REACTIONS (3)
  - Renal failure acute [Recovered/Resolved]
  - Atypical pneumonia [Recovered/Resolved]
  - Tubulointerstitial nephritis [Recovered/Resolved]
